FAERS Safety Report 7165970-X (Version None)
Quarter: 2010Q4

REPORT INFORMATION
  Report Type: 
  Country: None (occurrence: None)
  Receive Date: 20101216
  Receipt Date: 20101206
  Transmission Date: 20110411
  Serious: No
  Sender: FDA-Public Use
  Company Number: US-BIOGENIDEC-2010BI042927

PATIENT
  Sex: Female

DRUGS (1)
  1. TYSABRI [Suspect]
     Indication: MULTIPLE SCLEROSIS
     Route: 042
     Dates: start: 20080904

REACTIONS (5)
  - CONCUSSION [None]
  - FALL [None]
  - FATIGUE [None]
  - NEUTRALISING ANTIBODIES POSITIVE [None]
  - WHITE BLOOD CELL COUNT DECREASED [None]
